FAERS Safety Report 25716416 (Version 4)
Quarter: 2025Q3

REPORT INFORMATION
  Report Type: Report from Study
  Country: US (occurrence: US)
  Receive Date: 20250822
  Receipt Date: 20250904
  Transmission Date: 20251020
  Serious: Yes (Other)
  Sender: MALLINCKRODT
  Company Number: US-MALLINCKRODT-MNK202505105

PATIENT
  Age: 56 Year
  Sex: Female

DRUGS (5)
  1. CORTICOTROPIN [Suspect]
     Active Substance: CORTICOTROPIN
     Indication: Psoriatic arthropathy
     Dosage: 80 UNITS
     Route: 058
     Dates: start: 20230419
  2. CORTICOTROPIN [Suspect]
     Active Substance: CORTICOTROPIN
     Dosage: 80 UNITS
     Dates: start: 20250814
  3. ACRIVASTINE [Concomitant]
     Active Substance: ACRIVASTINE
  4. NORETHINDRONE [Concomitant]
     Active Substance: NORETHINDRONE
  5. SOLU-MEDROL [Concomitant]
     Active Substance: METHYLPREDNISOLONE SODIUM SUCCINATE

REACTIONS (13)
  - Hypertension [Unknown]
  - Visual impairment [Unknown]
  - Ocular discomfort [Unknown]
  - Pain [Unknown]
  - Aphasia [Unknown]
  - Eye pain [Unknown]
  - Migraine [Unknown]
  - Photophobia [Unknown]
  - Feeling abnormal [Unknown]
  - Insomnia [Unknown]
  - Blood potassium decreased [Unknown]
  - Body temperature increased [Unknown]
  - Headache [Unknown]

NARRATIVE: CASE EVENT DATE: 20250801
